FAERS Safety Report 23253393 (Version 1)
Quarter: 2023Q4

REPORT INFORMATION
  Report Type: Spontaneous
  Country: US (occurrence: US)
  Receive Date: 20231202
  Receipt Date: 20231202
  Transmission Date: 20240110
  Serious: Yes (Other)
  Sender: FDA-Public Use
  Company Number: US-MLMSERVICE-20231116-4666247-1

PATIENT
  Age: 54 Year
  Sex: Female

DRUGS (2)
  1. TAMOXIFEN [Suspect]
     Active Substance: TAMOXIFEN
     Indication: Lobular breast carcinoma in situ
     Dosage: 20 MILLIGRAM, ONCE A DAY
     Route: 065
  2. TAMOXIFEN [Suspect]
     Active Substance: TAMOXIFEN
     Indication: Invasive lobular breast carcinoma

REACTIONS (2)
  - Maculopathy [Unknown]
  - Retinal fovea disorder [Unknown]
